FAERS Safety Report 8560491-1 (Version None)
Quarter: 2012Q3

REPORT INFORMATION
  Report Type: 
  Country: None (occurrence: None)
  Receive Date: 20120802
  Receipt Date: 20101019
  Transmission Date: 20120928
  Serious: Yes (Other)
  Sender: FDA-Public Use
  Company Number: US-BAYER-200935089NA

PATIENT
  Age: 30 Year
  Sex: Female
  Weight: 114 kg

DRUGS (17)
  1. YASMIN [Suspect]
     Indication: ACNE
  2. ALDACTONE [Concomitant]
     Indication: HIRSUTISM
     Route: 065
     Dates: start: 20070808
  3. ATIVAN [Concomitant]
     Indication: PRODUCT USED FOR UNKNOWN INDICATION
     Route: 065
  4. ATENOLOL [Concomitant]
     Indication: PRODUCT USED FOR UNKNOWN INDICATION
  5. YASMIN [Suspect]
     Indication: CONTRACEPTION
     Route: 048
     Dates: start: 20070821, end: 20070925
  6. AMARYL [Concomitant]
     Indication: PRODUCT USED FOR UNKNOWN INDICATION
  7. CLONIDINE [Concomitant]
     Indication: PRODUCT USED FOR UNKNOWN INDICATION
     Route: 065
  8. PHENERGAN HCL [Concomitant]
     Indication: PRODUCT USED FOR UNKNOWN INDICATION
     Route: 065
  9. METFORMIN HYDROCHLORIDE [Concomitant]
     Indication: PRODUCT USED FOR UNKNOWN INDICATION
  10. HYDRALAZINE HCL [Concomitant]
     Indication: PRODUCT USED FOR UNKNOWN INDICATION
  11. ZOFRAN [Concomitant]
     Indication: PRODUCT USED FOR UNKNOWN INDICATION
     Route: 065
  12. LISINOPRIL [Concomitant]
     Indication: PRODUCT USED FOR UNKNOWN INDICATION
  13. YASMIN [Suspect]
     Indication: PREMENSTRUAL SYNDROME
  14. PROVERA [Concomitant]
     Indication: PRODUCT USED FOR UNKNOWN INDICATION
     Route: 065
     Dates: start: 20070808
  15. I.V. SOLUTIONS [Concomitant]
     Indication: DIARRHOEA
     Route: 042
  16. I.V. SOLUTIONS [Concomitant]
     Indication: VOMITING
  17. CLONIDINE [Concomitant]

REACTIONS (3)
  - CEREBELLAR INFARCTION [None]
  - RETINAL INJURY [None]
  - MENTAL DISORDER [None]
